FAERS Safety Report 8920893 (Version 1)
Quarter: 2012Q4

REPORT INFORMATION
  Report Type: 
  Country: BR (occurrence: BR)
  Receive Date: 20121121
  Receipt Date: 20121121
  Transmission Date: 20130627
  Serious: Yes (Hospitalization)
  Sender: FDA-Public Use
  Company Number: BR-GLAXOSMITHKLINE-A1002271A

PATIENT
  Age: 31 Year

DRUGS (5)
  1. ANTAK [Suspect]
     Indication: SUICIDE ATTEMPT
     Dosage: 150MG Unknown
     Route: 065
     Dates: start: 20121113, end: 20121113
  2. DIPYRONE [Suspect]
     Indication: SUICIDE ATTEMPT
     Route: 065
     Dates: start: 20121113, end: 20121113
  3. DICLOFENAC [Suspect]
     Indication: SUICIDE ATTEMPT
     Route: 065
     Dates: start: 20121113, end: 20121113
  4. CAFFEINE+DIPYRONE+ORPHENADRINE [Suspect]
     Indication: SUICIDE ATTEMPT
     Route: 065
     Dates: start: 20121113, end: 20121113
  5. DIPYRONE AND HYOSCINE [Suspect]
     Indication: SUICIDE ATTEMPT
     Route: 065
     Dates: start: 20121113, end: 20121113

REACTIONS (2)
  - Suicide attempt [Recovered/Resolved]
  - Somnolence [Not Recovered/Not Resolved]
